FAERS Safety Report 7557848-4 (Version None)
Quarter: 2011Q2

REPORT INFORMATION
  Report Type: 
  Country: None (occurrence: None)
  Receive Date: 20110620
  Receipt Date: 20110609
  Transmission Date: 20111010
  Serious: Yes (Other)
  Sender: FDA-Public Use
  Company Number: AU-JNJFOC-20110606405

PATIENT
  Sex: Male

DRUGS (9)
  1. STELARA [Suspect]
     Route: 058
     Dates: start: 20100329
  2. STELARA [Suspect]
     Route: 058
     Dates: start: 20110601
  3. STELARA [Suspect]
     Indication: PSORIASIS
     Route: 058
     Dates: start: 20100816
  4. STELARA [Suspect]
     Route: 058
     Dates: start: 20101213
  5. NORVASC [Concomitant]
  6. STELARA [Suspect]
     Route: 058
     Dates: start: 20110314
  7. COVERSYL PLUS [Concomitant]
  8. STELARA [Suspect]
     Route: 058
     Dates: start: 20100430
  9. STELARA [Suspect]
     Route: 058
     Dates: start: 20110316

REACTIONS (4)
  - KERATOACANTHOMA [None]
  - THERAPEUTIC RESPONSE DECREASED [None]
  - SQUAMOUS CELL CARCINOMA [None]
  - PSORIASIS [None]
